FAERS Safety Report 19837494 (Version 1)
Quarter: 2021Q3

REPORT INFORMATION
  Report Type: Spontaneous
  Country: DE (occurrence: DE)
  Receive Date: 20210916
  Receipt Date: 20210916
  Transmission Date: 20211014
  Serious: Yes (Hospitalization)
  Sender: FDA-Public Use
  Company Number: DE-MICRO LABS LIMITED-ML2021-02240

PATIENT
  Age: 79 Year
  Sex: Female

DRUGS (8)
  1. TELMISARTAN (ANDA 207016) [Suspect]
     Active Substance: TELMISARTAN
     Route: 048
  2. BISOPROLOL. [Concomitant]
     Active Substance: BISOPROLOL FUMARATE
     Route: 048
  3. SITAGLIPTIN AND METFORMIN [Concomitant]
     Route: 048
  4. PANTOPRAZOLE [Concomitant]
     Active Substance: PANTOPRAZOLE
     Route: 048
  5. SPIRONOLACTONE. [Suspect]
     Active Substance: SPIRONOLACTONE
     Route: 048
  6. APIXABAN [Suspect]
     Active Substance: APIXABAN
     Route: 048
  7. OXYCODONE AND NALOXONE EXTENDED RELEASE [Suspect]
     Active Substance: NALOXONE HYDROCHLORIDE\OXYCODONE HYDROCHLORIDE
     Route: 048
  8. ATORVASTATIN [Concomitant]
     Active Substance: ATORVASTATIN
     Route: 048

REACTIONS (3)
  - Fall [Recovering/Resolving]
  - Swelling face [Recovering/Resolving]
  - Pain [Recovering/Resolving]
